FAERS Safety Report 16267752 (Version 1)
Quarter: 2019Q2

REPORT INFORMATION
  Report Type: Spontaneous
  Country: US (occurrence: US)
  Receive Date: 20190503
  Receipt Date: 20190503
  Transmission Date: 20190711
  Serious: Yes (Other)
  Sender: FDA-Public Use
  Company Number: US-SUN PHARMACEUTICAL INDUSTRIES LTD-2019R1-206822

PATIENT
  Age: 74 Year
  Sex: Male

DRUGS (1)
  1. DIGOXIN. [Suspect]
     Active Substance: DIGOXIN
     Indication: PRODUCT USED FOR UNKNOWN INDICATION
     Dosage: UNK
     Route: 065

REACTIONS (6)
  - Ventricular fibrillation [Recovered/Resolved]
  - Ischaemia [Unknown]
  - Ventricular tachycardia [Recovered/Resolved]
  - Ventricular extrasystoles [Unknown]
  - Aortic stenosis [Unknown]
  - Toxicity to various agents [Unknown]
